FAERS Safety Report 15740108 (Version 2)
Quarter: 2018Q4

REPORT INFORMATION
  Report Type: Spontaneous
  Country: US (occurrence: US)
  Receive Date: 20181219
  Receipt Date: 20181227
  Transmission Date: 20190205
  Serious: No
  Sender: FDA-Public Use
  Company Number: US-SA-2018SA340458

PATIENT
  Age: 21 Year
  Sex: Male

DRUGS (1)
  1. ICY HOT MEDICATED NO MESS APPLICATOR [Suspect]
     Active Substance: MENTHOL

REACTIONS (3)
  - Erythema [Unknown]
  - Skin burning sensation [Unknown]
  - Skin irritation [Unknown]

NARRATIVE: CASE EVENT DATE: 20181207
